FAERS Safety Report 25169779 (Version 2)
Quarter: 2025Q2

REPORT INFORMATION
  Report Type: Spontaneous
  Country: US (occurrence: US)
  Receive Date: 20250407
  Receipt Date: 20250411
  Transmission Date: 20250717
  Serious: Yes (Life-Threatening, Other)
  Sender: NOVARTIS
  Company Number: US-002147023-NVSC2025US057321

PATIENT
  Sex: Male

DRUGS (4)
  1. PLUVICTO [Suspect]
     Active Substance: LUTETIUM LU-177 VIPIVOTIDE TETRAXETAN
     Indication: Product used for unknown indication
     Route: 065
  2. METAMIZOLE [Concomitant]
     Active Substance: METAMIZOLE
     Indication: Product used for unknown indication
     Route: 065
  3. NALTREXONE [Concomitant]
     Active Substance: NALTREXONE
     Indication: Product used for unknown indication
     Route: 065
  4. VITAMIN C [Concomitant]
     Active Substance: ASCORBIC ACID
     Indication: Product used for unknown indication
     Route: 065

REACTIONS (40)
  - Dyspnoea [Unknown]
  - Insomnia [Unknown]
  - Hypothalamo-pituitary disorder [Unknown]
  - Testicular haemorrhage [Unknown]
  - Bone disorder [Unknown]
  - Illness [Unknown]
  - Haemorrhage [Unknown]
  - Haemoptysis [Unknown]
  - Sneezing [Unknown]
  - Pallor [Unknown]
  - Rash [Unknown]
  - Dry mouth [Unknown]
  - Dry throat [Unknown]
  - Burning sensation [Unknown]
  - Weight increased [Unknown]
  - Fatigue [Unknown]
  - Pain [Unknown]
  - Gastrointestinal disorder [Unknown]
  - Endocrine disorder [Unknown]
  - T-lymphocyte count decreased [Unknown]
  - Radiation injury [Unknown]
  - Injury [Unknown]
  - Myalgia [Unknown]
  - Arthralgia [Unknown]
  - Alopecia [Unknown]
  - Face oedema [Unknown]
  - Gingival bleeding [Unknown]
  - Headache [Unknown]
  - Testicular pain [Unknown]
  - Abdominal discomfort [Unknown]
  - Immune system disorder [Unknown]
  - Aphonia [Unknown]
  - Vocal cord disorder [Unknown]
  - Thyroid disorder [Unknown]
  - Fluid retention [Unknown]
  - Toothache [Unknown]
  - Inflammation [Unknown]
  - Parasite allergy [Unknown]
  - Acne [Unknown]
  - Depression [Unknown]
